FAERS Safety Report 13570045 (Version 2)
Quarter: 2017Q2

REPORT INFORMATION
  Report Type: Report from Study
  Country: US (occurrence: US)
  Receive Date: 20170522
  Receipt Date: 20170525
  Transmission Date: 20170830
  Serious: Yes (Hospitalization)
  Sender: FDA-Public Use
  Company Number: US-ACTELION-A-NJ2017-154239

PATIENT
  Age: 64 Year
  Sex: Male
  Weight: 57.6 kg

DRUGS (4)
  1. ADCIRCA [Concomitant]
     Active Substance: TADALAFIL
  2. XARELTO [Concomitant]
     Active Substance: RIVAROXABAN
  3. OPSUMIT [Suspect]
     Active Substance: MACITENTAN
     Indication: PULMONARY HYPERTENSION
     Dosage: 10 MG, QD
     Route: 048
  4. REMODULIN [Concomitant]
     Active Substance: TREPROSTINIL

REACTIONS (4)
  - Dehydration [Recovering/Resolving]
  - Blood glucose decreased [Recovering/Resolving]
  - Vision blurred [Recovering/Resolving]
  - Blood count abnormal [Recovering/Resolving]
